FAERS Safety Report 26205262 (Version 1)
Quarter: 2025Q4

REPORT INFORMATION
  Report Type: Spontaneous
  Country: TN (occurrence: TN)
  Receive Date: 20251228
  Receipt Date: 20251228
  Transmission Date: 20260117
  Serious: Yes (Other)
  Sender: UNICHEM
  Company Number: TN-UNICHEM LABORATORIES LIMITED-UNI-2025-TN-004319

PATIENT

DRUGS (1)
  1. ALLOPURINOL [Suspect]
     Active Substance: ALLOPURINOL
     Indication: Gout
     Dosage: 200 MILLIGRAM, QD
     Route: 065
     Dates: start: 202312

REACTIONS (5)
  - Overlap syndrome [Unknown]
  - Acute generalised exanthematous pustulosis [Unknown]
  - Drug reaction with eosinophilia and systemic symptoms [Unknown]
  - Renal impairment [Not Recovered/Not Resolved]
  - Hepatic function abnormal [Unknown]
